FAERS Safety Report 6464480-2 (Version None)
Quarter: 2009Q4

REPORT INFORMATION
  Report Type: 
  Country: None (occurrence: None)
  Receive Date: 20091124
  Receipt Date: 20091109
  Transmission Date: 20100525
  Serious: Yes (Hospitalization)
  Sender: FDA-Public Use
  Company Number: 20090543

PATIENT
  Age: 45 Year
  Sex: Female

DRUGS (1)
  1. HYDROXYZINE HCL [Suspect]
     Indication: PRURITUS
     Dosage: 25 MG INTRAMUSCULAR
     Route: 030

REACTIONS (9)
  - FAT NECROSIS [None]
  - GAIT DISTURBANCE [None]
  - INJECTION SITE DISCOLOURATION [None]
  - INJECTION SITE PAIN [None]
  - MUSCLE HAEMORRHAGE [None]
  - MUSCLE NECROSIS [None]
  - MYOSITIS [None]
  - SKIN GRAFT [None]
  - WOUND INFECTION STAPHYLOCOCCAL [None]
